FAERS Safety Report 6889559-2 (Version None)
Quarter: 2010Q3

REPORT INFORMATION
  Report Type: 
  Country: None (occurrence: None)
  Receive Date: 20100730
  Receipt Date: 20080325
  Transmission Date: 20110219
  Serious: No
  Sender: FDA-Public Use
  Company Number: US-PFIZER INC-2008026645

PATIENT
  Sex: Female
  Weight: 68.181 kg

DRUGS (2)
  1. LIPITOR [Suspect]
     Indication: BLOOD CHOLESTEROL INCREASED
     Dates: start: 20080304, end: 20080325
  2. VALSARTAN [Concomitant]
     Indication: HYPERTENSION

REACTIONS (2)
  - ABDOMINAL DISTENSION [None]
  - GASTRIC DISORDER [None]
